FAERS Safety Report 7524445-6 (Version None)
Quarter: 2011Q2

REPORT INFORMATION
  Report Type: 
  Country: None (occurrence: None)
  Receive Date: 20110525
  Receipt Date: 20110512
  Transmission Date: 20111010
  Serious: Yes (Other)
  Sender: FDA-Public Use
  Company Number: 2011MA001277

PATIENT
  Age: 37 Year
  Sex: Female

DRUGS (4)
  1. PAREGORIC LIQUID USP (ALPHARMA) (PAREGORIC) [Suspect]
     Indication: SYMPHYSIOLYSIS
     Dosage: 5 MG; BID; PO
     Route: 048
     Dates: start: 20100922
  2. ACETAMINOPHEN AND CODEINE PHOSPHATE [Suspect]
     Indication: SYMPHYSIOLYSIS
     Dosage: ;PO
     Route: 048
  3. FEVERALL [Suspect]
     Indication: SYMPHYSIOLYSIS
     Dosage: 1 GM;
  4. BUTRANS [Suspect]
     Indication: SYMPHYSIOLYSIS
     Dosage: 10 MCG; QH; TDER
     Dates: start: 20101215, end: 20101229

REACTIONS (4)
  - DRUG EXPOSURE DURING PREGNANCY [None]
  - FOETAL HYPOKINESIA [None]
  - DRUG INEFFECTIVE [None]
  - STILLBIRTH [None]
